FAERS Safety Report 9322885 (Version 1)
Quarter: 2013Q2

REPORT INFORMATION
  Report Type: Report from Study
  Country: JP (occurrence: JP)
  Receive Date: 20130602
  Receipt Date: 20130602
  Transmission Date: 20140414
  Serious: Yes (Hospitalization, Other)
  Sender: FDA-Public Use
  Company Number: JP-BRISTOL-MYERS SQUIBB COMPANY-15114721

PATIENT
  Age: 12 Year
  Sex: Male
  Weight: 37.8 kg

DRUGS (7)
  1. SPRYCEL [Suspect]
     Indication: CHRONIC MYELOID LEUKAEMIA
     Dosage: 60MG + 40MG:3-15SEP09?20MG ON 16SEP?20MG 3/W:17-28SEP?20MG 5/W:10OCT-;04NOV09-;?UNK-12MAY10
     Route: 048
     Dates: start: 20090903, end: 20100512
  2. BACTRAMIN [Concomitant]
     Indication: PROPHYLAXIS
     Dosage: FORM: GRANULES.PRIOR TO THE START OF THERAPY.
     Route: 048
  3. FUNGIZONE [Concomitant]
     Indication: PROPHYLAXIS
     Dosage: FORM: SYRUP; UNK-04FEB10; 12FEB10-ONG.
     Route: 048
  4. MEPTIN [Concomitant]
     Dosage: FORM: SOLUTION.
     Route: 055
     Dates: start: 20100205
  5. INTAL [Concomitant]
     Dosage: FORM: SOLUTION.
     Route: 055
     Dates: start: 20100205
  6. FRAGMIN [Concomitant]
     Indication: PROPHYLAXIS
     Dosage: 1DF= 1500 UNITS, FORM: INJECTION.
     Route: 042
     Dates: start: 20100512, end: 20100517
  7. DIFLUCAN [Concomitant]
     Indication: PROPHYLAXIS
     Dosage: CAPS
     Route: 048
     Dates: start: 20090908

REACTIONS (4)
  - Interstitial lung disease [Not Recovered/Not Resolved]
  - Gamma-glutamyltransferase increased [Not Recovered/Not Resolved]
  - Pneumomediastinum [Recovering/Resolving]
  - Graft versus host disease in lung [Not Recovered/Not Resolved]
